FAERS Safety Report 8017276-4 (Version None)
Quarter: 2012Q1

REPORT INFORMATION
  Report Type: 
  Country: None (occurrence: None)
  Receive Date: 20120102
  Receipt Date: 20111222
  Transmission Date: 20120608
  Serious: Yes (Hospitalization)
  Sender: FDA-Public Use
  Company Number: IL-NOVOPROD-342001

PATIENT

DRUGS (1)
  1. VICTOZA [Suspect]
     Dosage: UNK
     Route: 065
     Dates: start: 20101130

REACTIONS (1)
  - RESPIRATORY FAILURE [None]
